FAERS Safety Report 18552697 (Version 1)
Quarter: 2020Q4

REPORT INFORMATION
  Report Type: Other
  Country: CA (occurrence: CA)
  Receive Date: 20201127
  Receipt Date: 20201127
  Transmission Date: 20210114
  Serious: Yes (Other)
  Sender: FDA-Public Use
  Company Number: CA-APOTEX-2020AP022240

PATIENT
  Age: 73 Year
  Sex: Female

DRUGS (2)
  1. GEMCITABINE. [Suspect]
     Active Substance: GEMCITABINE
     Indication: METASTASES TO LYMPH NODES
     Dosage: UNK
     Route: 065
  2. GEMCITABINE. [Suspect]
     Active Substance: GEMCITABINE
     Indication: PANCREATIC CARCINOMA METASTATIC

REACTIONS (6)
  - Systemic lupus erythematosus rash [Unknown]
  - Apoptosis [Unknown]
  - Drug eruption [Unknown]
  - Toxicity to various agents [Unknown]
  - Subacute cutaneous lupus erythematosus [Recovered/Resolved]
  - Off label use [Unknown]
